FAERS Safety Report 6744162-X (Version None)
Quarter: 2010Q2

REPORT INFORMATION
  Report Type: 
  Country: None (occurrence: None)
  Receive Date: 20100527
  Receipt Date: 20100519
  Transmission Date: 20101027
  Serious: Yes (Hospitalization)
  Sender: FDA-Public Use
  Company Number: IT-BAXTER-2010BH008503

PATIENT
  Age: 60 Year
  Sex: Male

DRUGS (13)
  1. ENDOXAN BAXTER [Suspect]
     Indication: NON-HODGKIN'S LYMPHOMA
     Route: 042
     Dates: start: 20091130, end: 20091130
  2. UROMITEXAN BAXTER [Suspect]
     Indication: DRUG USE FOR UNKNOWN INDICATION
     Route: 048
     Dates: start: 20091130, end: 20091214
  3. DELTACORTENE [Suspect]
     Indication: DRUG USE FOR UNKNOWN INDICATION
     Route: 048
     Dates: start: 20091130, end: 20091214
  4. URBASON [Suspect]
     Indication: NON-HODGKIN'S LYMPHOMA
     Route: 037
     Dates: start: 20091130, end: 20091130
  5. DOXORUBICIN HCL [Suspect]
     Indication: NON-HODGKIN'S LYMPHOMA
     Route: 042
     Dates: start: 20091130, end: 20091130
  6. VINCRISTINE SULFATE [Suspect]
     Indication: NON-HODGKIN'S LYMPHOMA
     Route: 042
     Dates: start: 20091130, end: 20091130
  7. METROTREXATO [Suspect]
     Indication: NON-HODGKIN'S LYMPHOMA
     Route: 037
     Dates: start: 20091130, end: 20091130
  8. NEULASTA [Concomitant]
     Indication: DRUG USE FOR UNKNOWN INDICATION
     Route: 058
  9. ALLOPURINOL [Concomitant]
     Indication: DRUG USE FOR UNKNOWN INDICATION
     Route: 048
     Dates: start: 20091130, end: 20091214
  10. BACTRIM [Concomitant]
     Indication: DRUG USE FOR UNKNOWN INDICATION
     Route: 048
     Dates: start: 20091130, end: 20091214
  11. CONCOR [Concomitant]
     Indication: DRUG USE FOR UNKNOWN INDICATION
     Route: 065
  12. KARVEA [Concomitant]
     Indication: DRUG USE FOR UNKNOWN INDICATION
     Route: 065
  13. GLIBOMET [Concomitant]
     Indication: DRUG USE FOR UNKNOWN INDICATION
     Route: 065

REACTIONS (2)
  - PARAESTHESIA [None]
  - STOMATITIS [None]
